FAERS Safety Report 24230900 (Version 2)
Quarter: 2024Q3

REPORT INFORMATION
  Report Type: Report from Study
  Country: CA (occurrence: CA)
  Receive Date: 20240821
  Receipt Date: 20240822
  Transmission Date: 20241016
  Serious: Yes (Other)
  Sender: JOHNSON AND JOHNSON
  Company Number: CA-JNJFOC-20240846309

PATIENT
  Age: 9 Year
  Sex: Male
  Weight: 23 kg

DRUGS (1)
  1. REMICADE [Suspect]
     Active Substance: INFLIXIMAB
     Indication: Colitis ulcerative
     Dosage: 3 UNITS INVOLVED IN THIS COMPLAINT
     Route: 041
     Dates: start: 20201001

REACTIONS (3)
  - Colitis ulcerative [Unknown]
  - Off label use [Unknown]
  - General physical health deterioration [Unknown]

NARRATIVE: CASE EVENT DATE: 20240815
